FAERS Safety Report 4954445-1 (Version None)
Quarter: 2006Q1

REPORT INFORMATION
  Report Type: 
  Country: None (occurrence: None)
  Receive Date: 20060322
  Receipt Date: 20060310
  Transmission Date: 20060701
  Serious: Yes (Death, Other)
  Sender: FDA-Public Use
  Company Number: 2005BH003286

PATIENT
  Age: 56 Year
  Sex: Male
  Weight: 56.5 kg

DRUGS (34)
  1. EXTRANEAL [Suspect]
     Indication: RENAL FAILURE CHRONIC
     Dosage: 2000 ML;EVERY DAY;IP
     Route: 033
     Dates: start: 20040309, end: 20050401
  2. DIANEAL UNKNOWN (DIANEAL GLUCOSE AND ELECTROLYTES) [Suspect]
     Indication: RENAL FAILURE CHRONIC
     Dosage: IP
     Route: 033
     Dates: start: 19920401, end: 20050401
  3. DIANEAL [Concomitant]
  4. DIGOXIN [Concomitant]
  5. ISOSORBIDE DINITRATE [Concomitant]
  6. TEPRENONE [Concomitant]
  7. PIMOBENDAN [Concomitant]
  8. ALLOPURINOL [Concomitant]
  9. ALFACALCIDOL [Concomitant]
  10. ZOPICLONE [Concomitant]
  11. CALCIUM CARBONATE [Concomitant]
  12. SEVELAMER [Concomitant]
  13. OMEPRAZOLE [Concomitant]
  14. BERAPROST [Concomitant]
  15. DIANEAL [Concomitant]
  16. ALFAROL [Concomitant]
  17. CYANOCOBALAMIN [Concomitant]
  18. NU-LOTAN [Concomitant]
  19. NORVASC [Concomitant]
  20. ALOSENN [Concomitant]
  21. SPO [Concomitant]
  22. CARDENALIN [Concomitant]
  23. INNOLET 30R [Concomitant]
  24. KETOPROFEN [Concomitant]
  25. MYTEAR [Concomitant]
  26. MUCOSPOR [Concomitant]
  27. ALDECIN [Concomitant]
  28. BIOFERMIN [Concomitant]
  29. RESUTAMIN KOWA [Concomitant]
  30. UREPEARL [Concomitant]
  31. ALYSE N [Concomitant]
  32. FK [Concomitant]
  33. L-MENTHOL [Concomitant]
  34. CLARITIN [Concomitant]

REACTIONS (4)
  - ESCHERICHIA INFECTION [None]
  - PERITONEAL DISORDER [None]
  - PERITONEAL PERFORATION [None]
  - SCLEROSING ENCAPSULATING PERITONITIS [None]
